APPROVED DRUG PRODUCT: CHLORDIAZEPOXIDE HYDROCHLORIDE
Active Ingredient: CHLORDIAZEPOXIDE HYDROCHLORIDE
Strength: 25MG
Dosage Form/Route: CAPSULE;ORAL
Application: A084679 | Product #002 | TE Code: AB
Applicant: CHARTWELL RX SCIENCES LLC
Approved: Approved Prior to Jan 1, 1982 | RLD: No | RS: No | Type: RX